FAERS Safety Report 18265921 (Version 1)
Quarter: 2020Q3

REPORT INFORMATION
  Report Type: Spontaneous
  Country: FR (occurrence: FR)
  Receive Date: 20200915
  Receipt Date: 20200915
  Transmission Date: 20201103
  Serious: Yes (Life-Threatening, Hospitalization)
  Sender: FDA-Public Use
  Company Number: FR-TEVA-2020-FR-1826698

PATIENT
  Age: 42 Year
  Sex: Male

DRUGS (5)
  1. HEROIN [Suspect]
     Active Substance: DIAMORPHINE
     Dosage: UNKNOWN
     Route: 065
  2. NORDIAZEPAM [Suspect]
     Active Substance: NORDAZEPAM
     Dosage: UNKNOWN
     Route: 065
  3. ALPRAZOLAM. [Suspect]
     Active Substance: ALPRAZOLAM
     Dosage: UNKNOWN
     Route: 065
  4. DIAZEPAM. [Suspect]
     Active Substance: DIAZEPAM
     Dosage: UNKNOWN
     Route: 065
  5. ALCOOL [Suspect]
     Active Substance: ALCOHOL
     Dosage: UNKNOWN
     Route: 048

REACTIONS (6)
  - Drug abuse [Unknown]
  - Bradypnoea [Recovered/Resolved]
  - Pneumonia aspiration [Recovering/Resolving]
  - Coma [Recovered/Resolved]
  - Acute kidney injury [Recovered/Resolved]
  - Acidosis [Recovering/Resolving]

NARRATIVE: CASE EVENT DATE: 20200508
